FAERS Safety Report 18173639 (Version 1)
Quarter: 2020Q3

REPORT INFORMATION
  Report Type: Spontaneous
  Country: US (occurrence: US)
  Receive Date: 20200820
  Receipt Date: 20200820
  Transmission Date: 20201103
  Serious: No
  Sender: FDA-Public Use
  Company Number: US-DRREDDYS-USA/USA/20/0125997

PATIENT
  Age: 70 Year
  Sex: Male
  Weight: 112.5 kg

DRUGS (1)
  1. SILVER SULFADIAZINE. [Suspect]
     Active Substance: SILVER SULFADIAZINE
     Indication: WOUND
     Dosage: APPLYING TOPICALLY
     Route: 061
     Dates: start: 20200811

REACTIONS (2)
  - Product use in unapproved indication [Unknown]
  - Application site discolouration [Unknown]
